FAERS Safety Report 8430390-4 (Version None)
Quarter: 2012Q2

REPORT INFORMATION
  Report Type: 
  Country: None (occurrence: None)
  Receive Date: 20120612
  Receipt Date: 20120516
  Transmission Date: 20120825
  Serious: No
  Sender: FDA-Public Use
  Company Number: US-ASTRAZENECA-2012SE29988

PATIENT
  Age: 76 Year
  Sex: Female

DRUGS (9)
  1. ATIVAN [Concomitant]
  2. LASIX [Concomitant]
  3. CELEBREX [Concomitant]
  4. ZOLOFT [Concomitant]
  5. SYNTHROID [Concomitant]
  6. NEXIUM [Suspect]
     Route: 048
  7. OMEPRAZOLE [Suspect]
     Route: 048
  8. MAXIDEX [Concomitant]
  9. FLEXERIL [Concomitant]

REACTIONS (3)
  - GASTROOESOPHAGEAL REFLUX DISEASE [None]
  - DRUG NAME CONFUSION [None]
  - DRUG INEFFECTIVE [None]
